FAERS Safety Report 11875849 (Version 1)
Quarter: 2015Q4

REPORT INFORMATION
  Report Type: Spontaneous
  Country: US (occurrence: US)
  Receive Date: 20151229
  Receipt Date: 20151229
  Transmission Date: 20160305
  Serious: No
  Sender: FDA-Public Use
  Company Number: US-CELGENEUS-USA-2015124311

PATIENT
  Sex: Female

DRUGS (2)
  1. OTEZLA [Suspect]
     Active Substance: APREMILAST
     Indication: DERMATITIS
  2. OTEZLA [Suspect]
     Active Substance: APREMILAST
     Indication: DERMATITIS CONTACT
     Route: 048

REACTIONS (1)
  - Off label use [Unknown]
